FAERS Safety Report 23632706 (Version 1)
Quarter: 2024Q1

REPORT INFORMATION
  Report Type: Spontaneous
  Country: US (occurrence: None)
  Receive Date: 20240313
  Receipt Date: 20240313
  Transmission Date: 20240410
  Serious: Yes (Hospitalization)
  Sender: FDA-Public Use
  Company Number: None

PATIENT
  Age: 61 Year
  Sex: Male
  Weight: 88.0 kg

DRUGS (1)
  1. SEMAGLUTIDE [Suspect]
     Active Substance: SEMAGLUTIDE
     Indication: Weight control
     Route: 042
     Dates: start: 20221018, end: 20240301

REACTIONS (5)
  - Atrial fibrillation [None]
  - Product compounding quality issue [None]
  - Product formulation issue [None]
  - Suspected product tampering [None]
  - Therapy cessation [None]

NARRATIVE: CASE EVENT DATE: 20240304
